FAERS Safety Report 11138743 (Version 7)
Quarter: 2016Q1

REPORT INFORMATION
  Report Type: Report from Study
  Country: CA (occurrence: CA)
  Receive Date: 20150527
  Receipt Date: 20160310
  Transmission Date: 20160525
  Serious: Yes (Hospitalization, Other)
  Sender: FDA-Public Use
  Company Number: CA-ROCHE-1394916

PATIENT
  Age: 62 Year
  Sex: Female

DRUGS (14)
  1. PREDNISONE. [Suspect]
     Active Substance: PREDNISONE
     Indication: PREMEDICATION
     Dosage: 50 MG PO HS AND AM PRIOR TO INFUSION
     Route: 048
     Dates: start: 20140501, end: 201503
  2. FOLIC ACID. [Concomitant]
     Active Substance: FOLIC ACID
  3. RITUXAN [Suspect]
     Active Substance: RITUXIMAB
     Indication: RHEUMATOID ARTHRITIS
     Route: 042
     Dates: start: 20140501
  4. RAMIPRIL. [Concomitant]
     Active Substance: RAMIPRIL
     Indication: HYPERTENSION
     Dosage: MAY (DATE AND YEAR UNKNOWN)
     Route: 065
     Dates: end: 20141123
  5. RAMIPRIL. [Concomitant]
     Active Substance: RAMIPRIL
     Dosage: MAY (DATE AND YEAR UNKNOWN)
     Route: 065
  6. EXTRA STRENGTH TYLENOL HEADACHE PLUS [Concomitant]
     Dosage: 500MG UP TO 8/DAY
     Route: 065
  7. PULMICORT TURBUHALER [Concomitant]
     Active Substance: BUDESONIDE
     Route: 055
  8. BRICANYL [Concomitant]
     Active Substance: TERBUTALINE SULFATE
     Route: 065
  9. RITUXAN [Suspect]
     Active Substance: RITUXIMAB
     Route: 042
     Dates: start: 20141124
  10. PREDNISONE. [Concomitant]
     Active Substance: PREDNISONE
     Route: 065
     Dates: start: 201408
  11. CETIRIZINE [Concomitant]
     Active Substance: CETIRIZINE HYDROCHLORIDE
  12. DIPHENHYDRAMINE HCL [Concomitant]
     Active Substance: DIPHENHYDRAMINE HYDROCHLORIDE
     Indication: PREMEDICATION
     Route: 048
     Dates: start: 20140501
  13. ACETAMINOPHEN. [Concomitant]
     Active Substance: ACETAMINOPHEN
     Indication: PREMEDICATION
     Route: 048
     Dates: start: 20140501
  14. RITUXAN [Suspect]
     Active Substance: RITUXIMAB
     Route: 042
     Dates: start: 20140515

REACTIONS (26)
  - B-lymphocyte count increased [Unknown]
  - Throat irritation [Unknown]
  - Infusion related reaction [Recovered/Resolved]
  - Pain [Unknown]
  - Swelling [Unknown]
  - Cough [Unknown]
  - Respiratory tract congestion [Unknown]
  - Stress [Unknown]
  - Chest pain [Recovered/Resolved]
  - Hypertension [Unknown]
  - Peripheral swelling [Recovered/Resolved]
  - Blood pressure increased [Unknown]
  - Rheumatoid arthritis [Unknown]
  - Insomnia [Unknown]
  - Mood swings [Unknown]
  - Tenderness [Not Recovered/Not Resolved]
  - Pain [Recovering/Resolving]
  - Drug ineffective [Unknown]
  - Headache [Unknown]
  - Contusion [Unknown]
  - Vertigo [Recovering/Resolving]
  - Sluggishness [Unknown]
  - Pain [Not Recovered/Not Resolved]
  - Peripheral swelling [Recovering/Resolving]
  - Pain in extremity [Unknown]
  - Heart rate decreased [Unknown]

NARRATIVE: CASE EVENT DATE: 20140501
